FAERS Safety Report 6668291-4 (Version None)
Quarter: 2010Q2

REPORT INFORMATION
  Report Type: 
  Country: None (occurrence: None)
  Receive Date: 20100406
  Receipt Date: 20100324
  Transmission Date: 20101027
  Serious: Yes (Other)
  Sender: FDA-Public Use
  Company Number: JP-PFIZER INC-2010039759

PATIENT
  Age: 41 Year
  Sex: Male

DRUGS (1)
  1. CABERGOLINE [Suspect]
     Indication: PITUITARY TUMOUR BENIGN
     Route: 048

REACTIONS (2)
  - CEREBROSPINAL FLUID RHINORRHOEA [None]
  - MENINGITIS BACTERIAL [None]
